FAERS Safety Report 24943405 (Version 2)
Quarter: 2025Q1

REPORT INFORMATION
  Report Type: Spontaneous
  Country: JP (occurrence: JP)
  Receive Date: 20250207
  Receipt Date: 20250221
  Transmission Date: 20250408
  Serious: Yes (Life-Threatening, Hospitalization)
  Sender: RADIUS PHARM
  Company Number: JP-RADIUS HEALTH, INC.-2024JP010414

PATIENT
  Age: 80 Year
  Sex: Male

DRUGS (6)
  1. ABALOPARATIDE [Suspect]
     Active Substance: ABALOPARATIDE
     Indication: Osteoporosis
     Route: 058
     Dates: start: 20241211, end: 20241211
  2. ROSUVASTATIN CALCIUM [Concomitant]
     Active Substance: ROSUVASTATIN CALCIUM
     Indication: Hyperlipidaemia
     Route: 048
     Dates: end: 20241215
  3. MAGNESIUM OXIDE [Concomitant]
     Active Substance: MAGNESIUM OXIDE
     Indication: Constipation
     Route: 048
     Dates: end: 20241215
  4. PREGABALIN [Concomitant]
     Active Substance: PREGABALIN
     Indication: Spinal stenosis
     Route: 048
     Dates: start: 20241207, end: 20241215
  5. LEVOFLOXACIN HEMIHYDRATE [Concomitant]
     Active Substance: LEVOFLOXACIN
     Indication: Osteomyelitis
     Route: 048
     Dates: start: 20241207, end: 20241213
  6. CALONAL [Concomitant]
     Active Substance: ACETAMINOPHEN
     Indication: Spinal compression fracture
     Route: 048
     Dates: start: 20241106, end: 20241215

REACTIONS (3)
  - Urticaria [Recovering/Resolving]
  - Mallory-Weiss syndrome [Recovering/Resolving]
  - Gastric ulcer haemorrhage [Recovering/Resolving]

NARRATIVE: CASE EVENT DATE: 20241212
